FAERS Safety Report 8841889 (Version 2)
Quarter: 2012Q4

REPORT INFORMATION
  Report Type: 
  Country: JP (occurrence: JP)
  Receive Date: 20121016
  Receipt Date: 20121031
  Transmission Date: 20130627
  Serious: Yes (Hospitalization)
  Sender: FDA-Public Use
  Company Number: JP-JNJFOC-20121004634

PATIENT
  Age: 46 Year
  Sex: Male

DRUGS (3)
  1. RISPERDAL [Suspect]
     Indication: SCHIZOPHRENIA
     Route: 048
  2. OLANZAPINE [Suspect]
     Indication: SCHIZOPHRENIA
     Route: 048
  3. NITRAZEPAM [Concomitant]
     Indication: SCHIZOPHRENIA
     Route: 048

REACTIONS (6)
  - Hyponatraemia [Recovering/Resolving]
  - Rhabdomyolysis [Unknown]
  - Renal failure acute [Recovered/Resolved]
  - Hyperthermia malignant [Unknown]
  - Loss of consciousness [Recovering/Resolving]
  - Polydipsia [Unknown]
